FAERS Safety Report 15763029 (Version 1)
Quarter: 2018Q4

REPORT INFORMATION
  Report Type: Report from Study
  Country: IT (occurrence: IT)
  Receive Date: 20181226
  Receipt Date: 20181226
  Transmission Date: 20190205
  Serious: Yes (Other)
  Sender: FDA-Public Use
  Company Number: IT-MYLANLABS-2018M1094832

PATIENT
  Age: 81 Year
  Sex: Male

DRUGS (3)
  1. CYTARABINE. [Suspect]
     Active Substance: CYTARABINE
     Indication: DIFFUSE LARGE B-CELL LYMPHOMA
     Dosage: ADMINISTERED AS A 2 HOUR INFUSION ON DAYS 1-3 OF THE CYCLE, EVERY 21 DAYS
     Route: 050
  2. RITUXIMAB. [Suspect]
     Active Substance: RITUXIMAB
     Indication: DIFFUSE LARGE B-CELL LYMPHOMA
     Dosage: ON DAY 1 OF THE CYCLE, EVERY 21 DAYS
     Route: 065
  3. BENDAMUSTINE HYDROCHLORIDE. [Suspect]
     Active Substance: BENDAMUSTINE HYDROCHLORIDE
     Indication: DIFFUSE LARGE B-CELL LYMPHOMA
     Dosage: ADMINISTERED AS A 1 HOUR INFUSION ON DAYS 1-2 OF THE CYCLE, EVERY 21 DAYS
     Route: 050

REACTIONS (2)
  - Salmonellosis [Unknown]
  - Colitis [Unknown]
